FAERS Safety Report 16920832 (Version 1)
Quarter: 2019Q4

REPORT INFORMATION
  Report Type: Spontaneous
  Country: US (occurrence: US)
  Receive Date: 20191015
  Receipt Date: 20191015
  Transmission Date: 20200122
  Serious: Yes (Life-Threatening, Hospitalization)
  Sender: FDA-Public Use
  Company Number: US-TEVA-2019-US-1121673

PATIENT
  Age: 26 Year
  Sex: Male

DRUGS (2)
  1. FENTANYL. [Suspect]
     Active Substance: FENTANYL
     Dosage: ON THE DAY OF PRESENTATION HE USED ONE HALF OF A 100 MCG FENTANYL PATCH (ABUSE)
  2. FENTANYL. [Suspect]
     Active Substance: FENTANYL
     Indication: DRUG ABUSE
     Dosage: DAILY USE, A QUARTER OF A 100 MCG FENTANYL PATCH; NUMBER OF DOSAGES: 1

REACTIONS (3)
  - Myelopathy [Recovering/Resolving]
  - Drug abuse [Unknown]
  - Respiratory muscle weakness [Recovering/Resolving]
